FAERS Safety Report 7682520-X (Version None)
Quarter: 2011Q3

REPORT INFORMATION
  Report Type: 
  Country: None (occurrence: None)
  Receive Date: 20110815
  Receipt Date: 20110801
  Transmission Date: 20111222
  Serious: Yes (Other)
  Sender: FDA-Public Use
  Company Number: PHHY2011BR70233

PATIENT
  Age: 60 Year
  Sex: Male

DRUGS (4)
  1. ENALAPRIL MALEATE [Suspect]
     Indication: HYPERTENSION
     Dosage: UNK UKN, UNK
  2. RASILEZ [Suspect]
     Indication: KIDNEY INFECTION
     Dosage: 1 DF, QD
  3. INDAPAMIDE [Suspect]
     Indication: HYPERTENSION
     Dosage: UNK UKN, UNK
  4. REFLOXAL [Suspect]
     Indication: HYPERTENSION
     Dosage: UNK UKN, UNK

REACTIONS (2)
  - GASTROINTESTINAL DISORDER [None]
  - DIABETES MELLITUS [None]
